FAERS Safety Report 9852317 (Version 2)
Quarter: 2014Q1

REPORT INFORMATION
  Report Type: Spontaneous
  Country: JP (occurrence: JP)
  Receive Date: 20140129
  Receipt Date: 20140307
  Transmission Date: 20141002
  Serious: Yes (Life-Threatening)
  Sender: FDA-Public Use
  Company Number: JP-MALLINCKRODT-T201401008

PATIENT
  Age: 71 Year
  Sex: Female
  Weight: 48 kg

DRUGS (1)
  1. OPTIRAY [Suspect]
     Indication: COMPUTERISED TOMOGRAM ABDOMEN
     Dosage: 37.5 ML, SINGLE
     Route: 042
     Dates: start: 20140116, end: 20140116

REACTIONS (1)
  - Anaphylactic shock [Recovered/Resolved]
